FAERS Safety Report 4695618-5 (Version None)
Quarter: 2005Q2

REPORT INFORMATION
  Report Type: 
  Country: None (occurrence: None)
  Receive Date: 20050617
  Receipt Date: 20050617
  Transmission Date: 20051028
  Serious: Yes (Hospitalization)
  Sender: FDA-Public Use
  Company Number: None

PATIENT
  Age: 72 Year
  Sex: Male
  Weight: 85 kg

DRUGS (8)
  1. LOVASTATIN [Suspect]
     Indication: HYPERLIPIDAEMIA
     Dosage: PO DAILY [LONG TERM]
     Route: 048
  2. GEMFIBROZIL [Suspect]
     Indication: HYPERLIPIDAEMIA
     Dosage: PO BID [2 MO PTA]
     Route: 048
  3. NITROSTAT [Concomitant]
  4. FUOSEMIDE [Concomitant]
  5. POTASSIUM CHLORIDE [Concomitant]
  6. LISINOPRIL [Concomitant]
  7. METOPROLOL [Concomitant]
  8. ASPIRIN [Concomitant]

REACTIONS (2)
  - RENAL FAILURE ACUTE [None]
  - RHABDOMYOLYSIS [None]
